FAERS Safety Report 23677331 (Version 1)
Quarter: 2024Q1

REPORT INFORMATION
  Report Type: Other
  Country: CN (occurrence: None)
  Receive Date: 20240327
  Receipt Date: 20240327
  Transmission Date: 20240409
  Serious: Yes (Hospitalization)
  Sender: FDA-Public Use
  Company Number: CN-ROCHE-3530617

PATIENT
  Age: 59 Year
  Sex: Female
  Weight: 51 kg

DRUGS (1)
  1. POLIVY [Suspect]
     Active Substance: POLATUZUMAB VEDOTIN-PIIQ
     Indication: Diffuse large B-cell lymphoma
     Route: 042
     Dates: start: 20240226, end: 20240320

REACTIONS (2)
  - Abdominal rebound tenderness [Not Recovered/Not Resolved]
  - Abdominal tenderness [Not Recovered/Not Resolved]

NARRATIVE: CASE EVENT DATE: 20240317
